FAERS Safety Report 7653478-4 (Version None)
Quarter: 2011Q3

REPORT INFORMATION
  Report Type: 
  Country: None (occurrence: None)
  Receive Date: 20110803
  Receipt Date: 20110729
  Transmission Date: 20111222
  Serious: No
  Sender: FDA-Public Use
  Company Number: US-PFIZER INC-2011155139

PATIENT
  Sex: Female
  Weight: 73.469 kg

DRUGS (7)
  1. CHANTIX [Suspect]
     Dosage: UNK
     Route: 048
     Dates: start: 20110201, end: 20110101
  2. ATIVAN [Concomitant]
     Dosage: UNK, 3X/DAY
  3. CHANTIX [Suspect]
     Dosage: UNK
     Route: 048
     Dates: start: 20110709
  4. CHANTIX [Suspect]
     Dosage: 1 MG, 2X/DAY
     Route: 048
     Dates: start: 20110101
  5. CHANTIX [Suspect]
     Indication: SMOKING CESSATION THERAPY
     Dosage: 0.5 MG, 1X/DAY
     Route: 048
     Dates: start: 20110201, end: 20110201
  6. SYNTHROID [Concomitant]
     Indication: THYROID DISORDER
     Dosage: UNK
  7. HUMALOG [Concomitant]
     Indication: DIABETES MELLITUS
     Dosage: UNK

REACTIONS (3)
  - DRUG INTOLERANCE [None]
  - INSOMNIA [None]
  - DRUG INEFFECTIVE [None]
